FAERS Safety Report 8721900 (Version 2)
Quarter: 2013Q1

REPORT INFORMATION
  Report Type: Spontaneous
  Country: BR (occurrence: BR)
  Receive Date: 20120814
  Receipt Date: 20130305
  Transmission Date: 20140127
  Serious: Yes (Death, Disabling, Other)
  Sender: FDA-Public Use
  Company Number: PHHY2012BR069211

PATIENT
  Sex: Female

DRUGS (8)
  1. EXELON [Suspect]
     Indication: DEMENTIA ALZHEIMER^S TYPE
     Dosage: 2 DF, DAILY
     Dates: start: 200710
  2. EXELON [Suspect]
     Dosage: 1 DF, DAILY
  3. AMIODARONE [Concomitant]
     Indication: ARRHYTHMIA
     Dosage: 1 DF, DAILY
     Route: 048
  4. CAPTOPRIL [Concomitant]
     Indication: HYPERTENSION
     Dosage: 2 DF, DAILY
     Route: 048
  5. HYDROCHLOROTHIAZIDE [Concomitant]
     Dosage: 1 DF, DAILY
     Route: 048
  6. LEXOTAN [Concomitant]
     Indication: SLEEP DISORDER
     Dosage: 1 DF, QD
     Route: 048
  7. RIVOTRIL [Concomitant]
     Indication: SLEEP DISORDER
     Dosage: 1 DF, DAILY
     Route: 048
     Dates: start: 2007
  8. AMITRIPTYLINE [Concomitant]
     Indication: ANXIETY
     Dosage: 1 DF, DAILY
     Route: 048

REACTIONS (13)
  - Respiratory failure [Fatal]
  - Urinary tract infection [Fatal]
  - Pneumonia [Fatal]
  - Cerebrovascular accident [Not Recovered/Not Resolved]
  - Vocal cord disorder [Not Recovered/Not Resolved]
  - Speech disorder [Not Recovered/Not Resolved]
  - Asthenia [Recovered/Resolved]
  - Aphasia [Unknown]
  - Abasia [Unknown]
  - Somnolence [Recovered/Resolved]
  - Schizophreniform disorder [Not Recovered/Not Resolved]
  - Hallucination [Recovering/Resolving]
  - Abnormal behaviour [Unknown]
